FAERS Safety Report 5377005-X (Version None)
Quarter: 2007Q3

REPORT INFORMATION
  Report Type: 
  Country: None (occurrence: None)
  Receive Date: 20070703
  Receipt Date: 20070619
  Transmission Date: 20080115
  Serious: Yes (Other)
  Sender: FDA-Public Use
  Company Number: CH-JNJFOC-20070604500

PATIENT
  Age: 7 Decade
  Sex: Female

DRUGS (1)
  1. LYRINEL [Suspect]
     Indication: HYPERTONIC BLADDER
     Route: 048

REACTIONS (1)
  - ANGIOEDEMA [None]
